FAERS Safety Report 9378317 (Version 2)
Quarter: 2013Q3

REPORT INFORMATION
  Report Type: Report from Study
  Country: ZA (occurrence: ZA)
  Receive Date: 20130701
  Receipt Date: 20130708
  Transmission Date: 20140515
  Serious: Yes (Death)
  Sender: FDA-Public Use
  Company Number: ZA-AMGEN-ZAFCT2013045933

PATIENT
  Age: 70 Year
  Sex: Female

DRUGS (6)
  1. DARBEPOETIN ALFA [Suspect]
     Indication: NEPHROGENIC ANAEMIA
     Dosage: UNK
     Dates: start: 20121127
  2. ELTROXIN [Concomitant]
     Dosage: 1 MUG, UNK
  3. ADALAT XL [Concomitant]
     Dosage: 60 MG, UNK
  4. ATENOLOL [Concomitant]
     Dosage: 50 MG, UNK
  5. LOMANOR [Concomitant]
     Dosage: 5 MG, UNK
     Route: 048
  6. TITRALAC [Concomitant]
     Dosage: UNK
     Route: 048

REACTIONS (1)
  - Death [Fatal]
